FAERS Safety Report 5599824-7 (Version None)
Quarter: 2008Q1

REPORT INFORMATION
  Report Type: 
  Country: None (occurrence: None)
  Receive Date: 20080123
  Receipt Date: 20080115
  Transmission Date: 20080703
  Serious: Yes (Hospitalization, Other)
  Sender: FDA-Public Use
  Company Number: US-ROCHE-467345

PATIENT
  Age: 21 Year
  Sex: Female
  Weight: 49.9 kg

DRUGS (11)
  1. ACCUTANE [Suspect]
     Indication: ACNE
     Route: 048
     Dates: start: 19991110, end: 20000501
  2. ACCUTANE [Suspect]
     Route: 048
     Dates: start: 20010112, end: 20020901
  3. ORTHO TRI-CYCLEN [Concomitant]
     Route: 048
     Dates: start: 19990901, end: 20060301
  4. DAYPRO [Concomitant]
     Indication: HEADACHE
     Route: 048
     Dates: start: 20020805
  5. SULFACET-R [Concomitant]
     Dosage: STRENGTH FORMULATION REPORTED AS: 10-5% LOTION.
     Route: 061
     Dates: start: 19991124
  6. BENZAMYCIN [Concomitant]
     Dosage: DOSAGE REGIMEN REPORTED AS: QHS.
     Route: 061
  7. RETIN-A [Concomitant]
     Dosage: STRENGTH AND FORMULATION REPORTED AS: LIQUID, QHS.
     Route: 061
  8. DEMULEN 1/35-21 [Concomitant]
     Dosage: STRENGTH AND FORMULATION REPORTED AS: 1/35.
     Route: 048
     Dates: start: 20010110, end: 20060301
  9. TYLENOL W/ CODEINE NO. 3 [Concomitant]
     Dosage: STRENGTH AND FORMULATION REPORTED AS: 300-30 MG TABS, 1-2 Q 4-6H PRN.
     Route: 048
     Dates: start: 20020816
  10. GUAIFED-PD [Concomitant]
     Indication: ILL-DEFINED DISORDER
     Dosage: STRENGTH AND FORMULATION REPORTED AS: 300-60 MG CR CAP.
     Route: 048
     Dates: start: 20020816
  11. TERAZOL 3 [Concomitant]
     Dates: start: 20000104

REACTIONS (15)
  - ANXIETY [None]
  - APPENDICITIS [None]
  - BLOOD CHOLESTEROL INCREASED [None]
  - COLITIS [None]
  - COLITIS ULCERATIVE [None]
  - DEPRESSION [None]
  - FUNGAL INFECTION [None]
  - HAEMATOMA [None]
  - HEADACHE [None]
  - ILEITIS [None]
  - INFLAMMATORY BOWEL DISEASE [None]
  - INTESTINAL HAEMORRHAGE [None]
  - IRON DEFICIENCY ANAEMIA [None]
  - IRRITABLE BOWEL SYNDROME [None]
  - ROAD TRAFFIC ACCIDENT [None]
